FAERS Safety Report 23872190 (Version 2)
Quarter: 2024Q3

REPORT INFORMATION
  Report Type: Spontaneous
  Country: US (occurrence: US)
  Receive Date: 20240520
  Receipt Date: 20240723
  Transmission Date: 20241016
  Serious: No
  Sender: BRISTOL MYERS SQUIBB
  Company Number: US-BRISTOL-MYERS SQUIBB COMPANY-2024-077395

PATIENT
  Age: 60 Year
  Sex: Female

DRUGS (1)
  1. REVLIMID [Suspect]
     Active Substance: LENALIDOMIDE
     Indication: Plasma cell myeloma
     Dosage: FREQUENCY: 2 CAPS ON MON, WED, AND FRI, THEN 3 CAPS TUE/THU
     Route: 048

REACTIONS (3)
  - Thyroid hormones decreased [Unknown]
  - Off label use [Unknown]
  - Laboratory test abnormal [Unknown]
